FAERS Safety Report 16921564 (Version 1)
Quarter: 2019Q4

REPORT INFORMATION
  Report Type: Report from Study
  Country: ZA (occurrence: ZA)
  Receive Date: 20191015
  Receipt Date: 20191015
  Transmission Date: 20200122
  Serious: Yes (Hospitalization)
  Sender: FDA-Public Use
  Company Number: PHHY2018ZA004887

PATIENT
  Age: 43 Year
  Sex: Male

DRUGS (2)
  1. TUVIGIN [Suspect]
     Active Substance: FINGOLIMOD HYDROCHLORIDE
     Dosage: 0.5 MG, UNK
     Route: 048
     Dates: start: 20170831
  2. TUVIGIN [Suspect]
     Active Substance: FINGOLIMOD HYDROCHLORIDE
     Indication: MULTIPLE SCLEROSIS
     Dosage: UNK
     Route: 065
     Dates: start: 201512

REACTIONS (7)
  - Multiple sclerosis relapse [Unknown]
  - Memory impairment [Unknown]
  - Rash pruritic [Unknown]
  - Lymphocyte count decreased [Unknown]
  - Gait disturbance [Unknown]
  - Pain [Unknown]
  - Varicella [Unknown]

NARRATIVE: CASE EVENT DATE: 20180507
